FAERS Safety Report 7554950-8 (Version None)
Quarter: 2011Q2

REPORT INFORMATION
  Report Type: 
  Country: None (occurrence: None)
  Receive Date: 20110610
  Receipt Date: 20110526
  Transmission Date: 20111010
  Serious: Yes (Hospitalization)
  Sender: FDA-Public Use
  Company Number: 2011-1770

PATIENT
  Age: 84 Year
  Sex: Male

DRUGS (13)
  1. RANITIDINE [Concomitant]
  2. MADOPAR(MADOPAR  /00349201/) [Concomitant]
  3. DOMPERIDONE (DOMPERIDONE) [Concomitant]
  4. ACETAMINOPHEN [Concomitant]
  5. APO-GO AMPOULES (APO-GO)(APOMORPHINE HYDROCHLORIDE)(APOMORPHINE HYDROC [Suspect]
     Indication: PARKINSON'S DISEASE
     Dosage: 3 MG (1 MG, 3 IN 1 D), SUBCUTANEOUS, 6 MG (2 MG,3 IN 1 D),SUBCUTANEOUS
     Route: 058
     Dates: start: 20110505, end: 20110511
  6. APO-GO AMPOULES (APO-GO)(APOMORPHINE HYDROCHLORIDE)(APOMORPHINE HYDROC [Suspect]
     Indication: PARKINSON'S DISEASE
     Dosage: 3 MG (1 MG, 3 IN 1 D), SUBCUTANEOUS, 6 MG (2 MG,3 IN 1 D),SUBCUTANEOUS
     Route: 058
     Dates: start: 20110428, end: 20110504
  7. COBENELDOPA  (MADOPAR  /00349201/) [Concomitant]
  8. DIGOXIN [Concomitant]
  9. KCL LIQUID (POTASSIUM CHLORIDE) [Concomitant]
  10. AMANTADINE HCL [Concomitant]
  11. RASAGILINE [Concomitant]
  12. NULYTELY [Concomitant]
  13. ROTIGOTINE PATCH (ROTIGOTINE) [Concomitant]

REACTIONS (1)
  - DEREALISATION [None]
